FAERS Safety Report 13748543 (Version 3)
Quarter: 2017Q3

REPORT INFORMATION
  Report Type: Report from Study
  Country: OM (occurrence: OM)
  Receive Date: 20170713
  Receipt Date: 20170723
  Transmission Date: 20171127
  Serious: Yes (Hospitalization)
  Sender: FDA-Public Use
  Company Number: PHHO2017OM001331

PATIENT
  Age: 14 Year
  Sex: Female
  Weight: 62 kg

DRUGS (2)
  1. ICL670A [Suspect]
     Active Substance: DEFERASIROX
     Dosage: 1530 MG, QD
     Route: 048
     Dates: start: 20160126
  2. ICL670A [Suspect]
     Active Substance: DEFERASIROX
     Indication: IRON OVERLOAD
     Dosage: 1530 MG, QD
     Route: 048
     Dates: start: 20161228, end: 20170118

REACTIONS (1)
  - Gastritis [Recovered/Resolved]

NARRATIVE: CASE EVENT DATE: 20170118
